FAERS Safety Report 26208352 (Version 1)
Quarter: 2025Q4

REPORT INFORMATION
  Report Type: Spontaneous
  Country: US (occurrence: None)
  Receive Date: 20251228
  Receipt Date: 20251228
  Transmission Date: 20260118
  Serious: No
  Sender: FDA-CTU
  Company Number: None

PATIENT
  Sex: Female

DRUGS (11)
  1. LENALIDOMIDE [Suspect]
     Active Substance: LENALIDOMIDE
     Indication: Plasma cell myeloma
     Route: 048
     Dates: start: 20251014
  2. ACETAMINOPHE TAB 325MG [Concomitant]
  3. ACYCLOVIR [Concomitant]
     Active Substance: ACYCLOVIR
  4. ALBUTEROL AER HFA [Concomitant]
  5. AMOXICILLIN [Concomitant]
     Active Substance: AMOXICILLIN
  6. ASPIRIN LOW TAB 81MG EC [Concomitant]
  7. BENADRYL ALG TAB 25MG [Concomitant]
  8. CLOBETASOL OIN 0.05% [Concomitant]
  9. COMPAZINE TAB 10MG [Concomitant]
  10. DEXAMETHASONE [Concomitant]
     Active Substance: DEXAMETHASONE
  11. DOCUSATE CAP 100MG [Concomitant]

REACTIONS (3)
  - Bronchitis [None]
  - Pneumonia [None]
  - Therapy interrupted [None]
